FAERS Safety Report 5295667-2 (Version None)
Quarter: 2007Q2

REPORT INFORMATION
  Report Type: 
  Country: None (occurrence: None)
  Receive Date: 20070410
  Receipt Date: 20070410
  Transmission Date: 20071010
  Serious: No
  Sender: FDA-Public Use
  Company Number: None

PATIENT
  Age: 47 Year
  Sex: Female
  Weight: 81.1939 kg

DRUGS (1)
  1. ZELNORM [Suspect]
     Indication: DIARRHOEA
     Dosage: EVERYDAY AS NEEDED
     Dates: start: 20061106, end: 20070409

REACTIONS (3)
  - DIARRHOEA [None]
  - MUSCLE SPASMS [None]
  - PALPITATIONS [None]
